FAERS Safety Report 20296930 (Version 1)
Quarter: 2022Q1

REPORT INFORMATION
  Report Type: Spontaneous
  Country: US (occurrence: None)
  Receive Date: 20220105
  Receipt Date: 20220105
  Transmission Date: 20220423
  Serious: No
  Sender: FDA-Public Use
  Company Number: US-ROCHE-2958920

PATIENT

DRUGS (1)
  1. HEMLIBRA [Suspect]
     Active Substance: EMICIZUMAB-KXWH
     Indication: Product used for unknown indication
     Dosage: HIGH DOSE ELOCTATE FOR 3 MONTHS3X WEEKLY OF 50 IU/KG)
     Route: 065

REACTIONS (1)
  - Haemorrhage [Unknown]
